FAERS Safety Report 7336343-1 (Version None)
Quarter: 2011Q1

REPORT INFORMATION
  Report Type: 
  Country: None (occurrence: None)
  Receive Date: 20110307
  Receipt Date: 20110225
  Transmission Date: 20110831
  Serious: Yes (Hospitalization)
  Sender: FDA-Public Use
  Company Number: JP-ALLERGAN-1011102US

PATIENT
  Age: 4 Year
  Sex: Male
  Weight: 10 kg

DRUGS (13)
  1. DIAZEPAM [Suspect]
     Indication: EPILEPSY
     Dosage: 4 MG, QD
     Route: 048
  2. ASVERIN [Concomitant]
     Indication: BRONCHITIS
     Dosage: 30 MG, QD
     Route: 048
  3. TRICLORYL [Concomitant]
     Indication: EPILEPSY
     Dosage: 5 ML, QD
     Route: 048
  4. BOTOX [Suspect]
     Indication: TORTICOLLIS
     Dosage: 70 UNITS, SINGLE
     Route: 030
     Dates: start: 20100209, end: 20100209
  5. BOTOX [Suspect]
     Dosage: 60 UNITS, SINGLE
     Route: 030
     Dates: start: 20091005, end: 20091005
  6. DIAPP [Concomitant]
     Indication: EPILEPSY
     Dosage: 4 MG, QD
     Route: 054
  7. RIVOTRIL [Concomitant]
     Indication: EPILEPSY
     Dosage: 0.25 MG, QD
     Route: 048
  8. PERIACTIN [Concomitant]
     Indication: BRONCHITIS
     Dosage: 1.5 MG, QD
     Route: 048
  9. MUCODYNE [Concomitant]
     Indication: BRONCHITIS
     Dosage: 300 MG, QD
     Route: 048
  10. BOTOX [Suspect]
     Dosage: 90 UNK, UNK
     Route: 030
     Dates: start: 20101108, end: 20101108
  11. BOTOX [Suspect]
     Dosage: 40 UNITS, SINGLE
     Route: 030
     Dates: start: 20090519, end: 20090519
  12. PHENOBAL [Concomitant]
     Indication: EPILEPSY
     Dosage: 12 MG, QD
     Route: 048
  13. MYONAL [Suspect]
     Indication: EPILEPSY
     Dosage: 14 MG, QD
     Route: 048

REACTIONS (3)
  - INCREASED VISCOSITY OF BRONCHIAL SECRETION [None]
  - MUSCULAR WEAKNESS [None]
  - PNEUMONIA ASPIRATION [None]
